FAERS Safety Report 5000144-X (Version None)
Quarter: 2006Q2

REPORT INFORMATION
  Report Type: 
  Country: None (occurrence: None)
  Receive Date: 20060509
  Receipt Date: 20050127
  Transmission Date: 20061013
  Serious: Yes (Other)
  Sender: FDA-Public Use
  Company Number: 2005021456

PATIENT
  Age: 50 Year
  Sex: Male

DRUGS (2)
  1. ZELDOX [Suspect]
     Indication: SCHIZOPHRENIA, RESIDUAL TYPE
     Dosage: 80 MG (40 MG, 2, IN 1 D), ORAL
     Route: 048
  2. CHLORPROMAZINE [Concomitant]

REACTIONS (3)
  - AGITATION [None]
  - ANXIETY [None]
  - SUICIDAL IDEATION [None]
